FAERS Safety Report 16003437 (Version 4)
Quarter: 2021Q3

REPORT INFORMATION
  Report Type: Other
  Country: CA (occurrence: CA)
  Receive Date: 20190226
  Receipt Date: 20210817
  Transmission Date: 20211014
  Serious: Yes (Other)
  Sender: FDA-Public Use
  Company Number: CA-APOTEX-2019AP008264

PATIENT
  Age: 59 Year
  Sex: Female

DRUGS (14)
  1. BUDESONIDE W/FORMOTEROL FUMARATE [Suspect]
     Active Substance: BUDESONIDE\FORMOTEROL FUMARATE
     Indication: PRODUCT USED FOR UNKNOWN INDICATION
     Dosage: 2 DOSAGE FORM, BID
  2. OMALIZUMAB. [Suspect]
     Active Substance: OMALIZUMAB
     Indication: PRODUCT USED FOR UNKNOWN INDICATION
     Dosage: UNK
     Route: 058
  3. PROLIA [Concomitant]
     Active Substance: DENOSUMAB
     Indication: PRODUCT USED FOR UNKNOWN INDICATION
     Dosage: UNK
     Route: 058
  4. MONTELUKAST [Suspect]
     Active Substance: MONTELUKAST SODIUM
     Indication: PRODUCT USED FOR UNKNOWN INDICATION
     Dosage: UNK
     Route: 065
  5. THEOPHYLLINE [Suspect]
     Active Substance: THEOPHYLLINE ANHYDROUS
     Indication: PRODUCT USED FOR UNKNOWN INDICATION
     Dosage: UNK
     Route: 065
  6. PULMICORT TURBUHALER [Suspect]
     Active Substance: BUDESONIDE
     Indication: PRODUCT USED FOR UNKNOWN INDICATION
     Dosage: 2 DOSAGE FORM, BID
     Route: 065
  7. LITHOTHAMNIUM CALCAREUM [Concomitant]
     Indication: PRODUCT USED FOR UNKNOWN INDICATION
     Dosage: UNK
     Route: 065
  8. AMLODIPINE [Suspect]
     Active Substance: AMLODIPINE BESYLATE
     Indication: PRODUCT USED FOR UNKNOWN INDICATION
     Dosage: UNK
     Route: 065
  9. VITAMIN D3 [Concomitant]
     Active Substance: CHOLECALCIFEROL
     Indication: PRODUCT USED FOR UNKNOWN INDICATION
     Dosage: 30000 DOSAGE FORM, QD
     Route: 065
  10. SALBUTAMOL [Suspect]
     Active Substance: ALBUTEROL
     Indication: PRODUCT USED FOR UNKNOWN INDICATION
     Dosage: UNK
     Route: 065
  11. SYMBICORT [Suspect]
     Active Substance: BUDESONIDE\FORMOTEROL FUMARATE DIHYDRATE
     Indication: PRODUCT USED FOR UNKNOWN INDICATION
     Dosage: 2 DOSAGE FORM, BID
     Route: 065
  12. MEPOLIZUMAB [Suspect]
     Active Substance: MEPOLIZUMAB
     Indication: ASTHMA
     Dosage: 100 MILLIGRAM
     Route: 042
  13. XOLAIR [Suspect]
     Active Substance: OMALIZUMAB
     Indication: PRODUCT USED FOR UNKNOWN INDICATION
     Dosage: UNK
     Route: 065
  14. VITAMIN D3 [Concomitant]
     Active Substance: CHOLECALCIFEROL
     Dosage: 1 DOSAGE FORM, QD
     Route: 065

REACTIONS (32)
  - Bronchial obstruction [Recovered/Resolved]
  - Hypoaesthesia [Recovered/Resolved]
  - Myalgia [Recovered/Resolved]
  - Injection site haematoma [Recovered/Resolved]
  - Chills [Recovered/Resolved]
  - Wheezing [Recovered/Resolved]
  - Breast disorder [Recovered/Resolved]
  - Muscular weakness [Recovered/Resolved]
  - Asthma [Recovered/Resolved]
  - Breast operation [Recovered/Resolved]
  - Hyperaemia [Recovered/Resolved]
  - Influenza [Recovered/Resolved]
  - Nasopharyngitis [Recovered/Resolved]
  - Productive cough [Recovered/Resolved]
  - Malaise [Recovered/Resolved]
  - Headache [Recovered/Resolved]
  - Burning sensation [Recovered/Resolved]
  - Sleep disorder [Recovered/Resolved]
  - Stress [Recovered/Resolved]
  - Head discomfort [Recovered/Resolved]
  - Back pain [Recovered/Resolved]
  - Fatigue [Recovered/Resolved]
  - Obstructive airways disorder [Recovered/Resolved]
  - Pyrexia [Recovered/Resolved]
  - Sputum abnormal [Recovered/Resolved]
  - Chest pain [Recovered/Resolved]
  - Drug ineffective [Recovered/Resolved]
  - Pain in extremity [Recovered/Resolved]
  - Unevaluable event [Recovered/Resolved]
  - Dyspnoea [Recovered/Resolved]
  - FEV1/FVC ratio decreased [Recovered/Resolved]
  - Palpitations [Recovered/Resolved]
